FAERS Safety Report 6964811-0 (Version None)
Quarter: 2010Q3

REPORT INFORMATION
  Report Type: 
  Country: None (occurrence: None)
  Receive Date: 20100903
  Receipt Date: 20100831
  Transmission Date: 20110219
  Serious: Yes (Death)
  Sender: FDA-Public Use
  Company Number: CL-SANOFI-AVENTIS-2010SA024775

PATIENT
  Age: 77 Year
  Sex: Male
  Weight: 61 kg

DRUGS (19)
  1. AFLIBERCEPT [Suspect]
     Route: 042
     Dates: start: 20100126, end: 20100126
  2. AFLIBERCEPT [Suspect]
     Route: 042
     Dates: start: 20100305, end: 20100305
  3. DOCETAXEL [Suspect]
     Route: 042
     Dates: start: 20100126, end: 20100126
  4. DOCETAXEL [Suspect]
     Route: 042
     Dates: start: 20100305, end: 20100305
  5. PREDNISONE TAB [Suspect]
     Route: 048
     Dates: start: 20100126, end: 20100305
  6. DECAPEPTYL /SWE/ [Concomitant]
     Indication: HORMONE THERAPY
     Dates: start: 20090101
  7. FLUOXETINE [Concomitant]
     Dates: start: 20100104
  8. OMEPRAZOLE [Concomitant]
     Dates: start: 20100104
  9. METOCLOPRAMIDE [Concomitant]
     Dates: start: 20100104
  10. LACTULOSE [Concomitant]
     Dates: start: 20100104
  11. ALPRAZOLAM [Concomitant]
     Dates: start: 20100104
  12. ENALAPRIL [Concomitant]
     Dates: start: 20000101
  13. CARDICON - SLOW RELEASE ^ELAN^ [Concomitant]
     Dates: start: 20000101
  14. LOPERAMIDE [Concomitant]
     Dates: start: 20100127
  15. ALLOPURINOL [Concomitant]
     Dates: start: 20100125
  16. ZOFRAN [Concomitant]
     Dates: start: 20100305, end: 20100305
  17. RANITIDINE [Concomitant]
     Dates: start: 20100305, end: 20100305
  18. CHLORPHENAMINE [Concomitant]
     Dates: start: 20100305, end: 20100305
  19. DEXAMETHASONE [Concomitant]
     Dates: start: 20100305, end: 20100305

REACTIONS (1)
  - DISEASE PROGRESSION [None]
